FAERS Safety Report 5512429-9 (Version None)
Quarter: 2007Q4

REPORT INFORMATION
  Report Type: 
  Country: None (occurrence: None)
  Receive Date: 20071112
  Receipt Date: 20061106
  Transmission Date: 20080405
  Serious: No
  Sender: FDA-Public Use
  Company Number: A0626328A

PATIENT
  Age: 71 Year
  Sex: Male

DRUGS (5)
  1. AVANDAMET [Suspect]
     Dosage: 1TAB PER DAY
     Route: 048
     Dates: start: 20061012
  2. UNSPECIFIED MEDICATION [Concomitant]
  3. OMEGA 3 [Concomitant]
  4. GARLIC [Concomitant]
  5. SAW PALMETTO [Concomitant]

REACTIONS (2)
  - DIARRHOEA [None]
  - MEDICATION RESIDUE [None]
